FAERS Safety Report 14294342 (Version 1)
Quarter: 2017Q4

REPORT INFORMATION
  Report Type: Spontaneous
  Country: FR (occurrence: FR)
  Receive Date: 20171217
  Receipt Date: 20171217
  Transmission Date: 20180321
  Serious: Yes (Other)
  Sender: FDA-Public Use
  Company Number: FR-MERCK KGAA-2037261

PATIENT
  Sex: Male
  Weight: 83 kg

DRUGS (11)
  1. LOXEN (NICARDIPINE HYDROCHLORIDE) [Concomitant]
     Active Substance: NICARDIPINE HYDROCHLORIDE
  2. INEXIUM [Concomitant]
     Active Substance: ESOMEPRAZOLE
  3. TAHOR [Concomitant]
     Active Substance: ATORVASTATIN CALCIUM
  4. KARDEGIC [Concomitant]
     Active Substance: ASPIRIN DL-LYSINE
  5. ATENOLOL. [Concomitant]
     Active Substance: ATENOLOL
  6. COTRIATEC (SALUTEC) [Concomitant]
  7. BRILIQUE [Concomitant]
     Active Substance: TICAGRELOR
  8. NOVOTHYROX [Suspect]
     Active Substance: LEVOTHYROXINE SODIUM
     Indication: HYPOTHYROIDISM
     Route: 048
     Dates: start: 20170401, end: 20170906
  9. LYRICA [Concomitant]
     Active Substance: PREGABALIN
  10. PROCORALAN [Concomitant]
     Active Substance: IVABRADINE
  11. ALLOPURINOL. [Concomitant]
     Active Substance: ALLOPURINOL

REACTIONS (5)
  - Fatigue [Not Recovered/Not Resolved]
  - Headache [Not Recovered/Not Resolved]
  - Muscle spasms [Not Recovered/Not Resolved]
  - Blood thyroid stimulating hormone decreased [Recovered/Resolved]
  - Amnesia [Not Recovered/Not Resolved]

NARRATIVE: CASE EVENT DATE: 201705
